FAERS Safety Report 6334941-5 (Version None)
Quarter: 2009Q3

REPORT INFORMATION
  Report Type: 
  Country: None (occurrence: None)
  Receive Date: 20090831
  Receipt Date: 20090519
  Transmission Date: 20100115
  Serious: Yes (Other)
  Sender: FDA-Public Use
  Company Number: US-BAYER-200921443NA

PATIENT
  Age: 39 Year
  Sex: Female
  Weight: 108 kg

DRUGS (10)
  1. MAGNEVIST [Suspect]
     Indication: DRUG USE FOR UNKNOWN INDICATION
  2. CELLCEPT [Concomitant]
  3. PROGRAF [Concomitant]
  4. NORVASC [Concomitant]
  5. PROZAC [Concomitant]
  6. COUMADIN [Concomitant]
  7. BACTRIM [Concomitant]
  8. PREDNISONE TAB [Concomitant]
  9. CYTOXAN [Concomitant]
  10. AZATHIOPRINE [Concomitant]

REACTIONS (11)
  - BACK PAIN [None]
  - ERYTHEMA [None]
  - FIBROSIS [None]
  - NEPHROGENIC SYSTEMIC FIBROSIS [None]
  - OEDEMA PERIPHERAL [None]
  - PAIN [None]
  - RASH GENERALISED [None]
  - SKIN INDURATION [None]
  - SKIN PLAQUE [None]
  - SKIN TIGHTNESS [None]
  - SUBCUTANEOUS NODULE [None]
